FAERS Safety Report 8936368 (Version 2)
Quarter: 2012Q4

REPORT INFORMATION
  Report Type: 
  Country: US (occurrence: US)
  Receive Date: 20121130
  Receipt Date: 20121204
  Transmission Date: 20130627
  Serious: No
  Sender: FDA-Public Use
  Company Number: US-009507513-1211USA012845

PATIENT
  Age: 79 None
  Sex: Male
  Weight: 81.63 kg

DRUGS (2)
  1. CLARITIN LIQUIGELS [Suspect]
     Indication: NASAL CONGESTION
     Dosage: 10 mg, qd
     Route: 048
     Dates: start: 20120914, end: 20120921
  2. CLARITIN LIQUIGELS [Suspect]
     Indication: MEDICAL OBSERVATION

REACTIONS (6)
  - Arthralgia [Not Recovered/Not Resolved]
  - Tendon pain [Not Recovered/Not Resolved]
  - Myalgia [Not Recovered/Not Resolved]
  - Joint stiffness [Not Recovered/Not Resolved]
  - Muscle tightness [Not Recovered/Not Resolved]
  - Off label use [Unknown]
